FAERS Safety Report 6342227-8 (Version None)
Quarter: 2009Q3

REPORT INFORMATION
  Report Type: 
  Country: None (occurrence: None)
  Receive Date: 20090903
  Receipt Date: 20090903
  Transmission Date: 20100115
  Serious: No
  Sender: FDA-Public Use
  Company Number: None

PATIENT
  Age: 55 Year
  Sex: Female
  Weight: 62.5964 kg

DRUGS (7)
  1. LIOTHYRONINE SODIUM [Suspect]
     Indication: HYPOTHYROIDISM
     Dosage: 5 MCG TABLET DAILY ORAL
     Route: 048
     Dates: start: 20090708, end: 20090728
  2. CORGARD [Concomitant]
  3. NORTRIPYLINE [Concomitant]
  4. LO OVROL [Concomitant]
  5. SYNTHROID [Concomitant]
  6. ASTELIN [Concomitant]
  7. FLUTICASONE [Concomitant]

REACTIONS (9)
  - ATRIAL FIBRILLATION [None]
  - BLOOD THYROID STIMULATING HORMONE DECREASED [None]
  - COLD SWEAT [None]
  - DIZZINESS [None]
  - DRUG EFFECT INCREASED [None]
  - HEART RATE INCREASED [None]
  - HEART RATE IRREGULAR [None]
  - NAUSEA [None]
  - PRODUCT SUBSTITUTION ISSUE [None]
